FAERS Safety Report 5317968-1 (Version None)
Quarter: 2007Q2

REPORT INFORMATION
  Report Type: 
  Country: None (occurrence: None)
  Receive Date: 20070507
  Receipt Date: 20070425
  Transmission Date: 20071010
  Serious: Yes (Other)
  Sender: FDA-Public Use
  Company Number: PHEH2007US04265

PATIENT
  Age: 56 Year
  Sex: Female

DRUGS (1)
  1. ZELNORM [Suspect]
     Indication: CONSTIPATION
     Dosage: UNK, UNK
     Route: 048
     Dates: start: 20061201, end: 20061202

REACTIONS (4)
  - CHEST PAIN [None]
  - HEART RATE INCREASED [None]
  - PAIN IN EXTREMITY [None]
  - PALPITATIONS [None]
